FAERS Safety Report 5098685-2 (Version None)
Quarter: 2006Q3

REPORT INFORMATION
  Report Type: 
  Country: None (occurrence: None)
  Receive Date: 20060907
  Receipt Date: 20060831
  Transmission Date: 20061208
  Serious: Yes (Hospitalization)
  Sender: FDA-Public Use
  Company Number: PHHO2006DE14555

PATIENT
  Age: 20 Year
  Sex: Male

DRUGS (6)
  1. CYCLOSPORINE [Suspect]
     Indication: RENAL TRANSPLANT
     Dosage: 400 MG DAILY DOSE
     Route: 048
     Dates: start: 20060611
  2. CYCLOSPORINE [Suspect]
     Dosage: 300 MG DAILY DOSE
     Route: 048
     Dates: start: 20060801
  3. NO TREATMENT RECEIVED NOMED [Suspect]
     Indication: RENAL TRANSPLANT
     Dosage: NO TREATMENT
  4. MYFORTIC [Suspect]
     Indication: RENAL TRANSPLANT
     Dosage: 1440 MG DAILY DOSE
     Route: 048
     Dates: start: 20060609
  5. DECORTIN-H [Suspect]
     Indication: RENAL TRANSPLANT
     Dosage: 50 MG DAILY DOSE
     Route: 048
     Dates: start: 20060614
  6. DECORTIN-H [Suspect]
     Dosage: 15 MG DAILY DOSE
     Route: 048
     Dates: start: 20060803

REACTIONS (3)
  - NEPHROSTOMY [None]
  - PYELONEPHRITIS [None]
  - URETERIC STENOSIS [None]
